FAERS Safety Report 4551239-6 (Version None)
Quarter: 2005Q1

REPORT INFORMATION
  Report Type: 
  Country: None (occurrence: None)
  Receive Date: 20050110
  Receipt Date: 20050104
  Transmission Date: 20050727
  Serious: Yes (Other)
  Sender: FDA-Public Use
  Company Number: STA-AE-05-MTX-001

PATIENT
  Age: 41 Year
  Sex: Female

DRUGS (6)
  1. METHOTREXATE [Suspect]
     Indication: RHEUMATOID ARTHRITIS
     Dosage: 15 MILLIGRAM 1 WEEK, ORAL
     Route: 048
     Dates: start: 20011010
  2. ABATACEPT [Suspect]
     Indication: RHEUMATOID ARTHRITIS
     Dosage: 500 MG, IV
     Route: 042
     Dates: start: 20040407, end: 20041020
  3. PREDNISONE [Suspect]
     Indication: PERICARDIAL EFFUSION
     Dosage: ORAL
     Route: 048
     Dates: start: 20021210
  4. FOLIC ACID [Concomitant]
  5. ACETAMINOPHEN [Concomitant]
  6. OMEPRAZOLE [Concomitant]

REACTIONS (5)
  - GANGLION [None]
  - NEUTROPHILIA [None]
  - PULMONARY FIBROSIS [None]
  - PULMONARY TUBERCULOSIS [None]
  - WHITE BLOOD CELL COUNT INCREASED [None]
